FAERS Safety Report 14349381 (Version 5)
Quarter: 2018Q3

REPORT INFORMATION
  Report Type: Other
  Country: IT (occurrence: IT)
  Receive Date: 20180104
  Receipt Date: 20180925
  Transmission Date: 20181010
  Serious: Yes (Hospitalization, Other)
  Sender: FDA-Public Use
  Company Number: IT-APOTEX-2018AP005003

PATIENT
  Age: 86 Year
  Sex: Female

DRUGS (7)
  1. RAMIPRIL. [Suspect]
     Active Substance: RAMIPRIL
     Dosage: 2 DF, QD
     Route: 048
     Dates: start: 20170101, end: 20170701
  2. XARELTO [Concomitant]
     Active Substance: RIVAROXABAN
     Indication: PRODUCT USED FOR UNKNOWN INDICATION
     Dosage: 20 MG, UNK
     Route: 048
  3. CONGESCOR [Suspect]
     Active Substance: BISOPROLOL
     Indication: HYPERTENSION
     Dosage: 2 DF, DAILY
     Route: 048
     Dates: start: 20170101, end: 20170702
  4. RAMIPRIL. [Suspect]
     Active Substance: RAMIPRIL
     Indication: HYPERTENSION
     Dosage: 2 DF PER DAY
     Route: 048
     Dates: start: 20170101, end: 20170701
  5. PAROXETINE. [Suspect]
     Active Substance: PAROXETINE
     Indication: DEPRESSION
     Dosage: 20 MG, QD
     Route: 048
     Dates: start: 20170101, end: 20170702
  6. LASIX [Suspect]
     Active Substance: FUROSEMIDE
     Indication: HYPERTENSION
     Dosage: 1 DF, DAILY
     Route: 048
     Dates: start: 20170101, end: 20170702
  7. BISOPROLOL [Suspect]
     Active Substance: BISOPROLOL
     Indication: HYPERTENSION
     Dosage: 2 DF,QD
     Route: 048
     Dates: start: 20170101, end: 20170702

REACTIONS (4)
  - Hypertensive crisis [Unknown]
  - Vomiting [Unknown]
  - Headache [Unknown]
  - Drug ineffective [Unknown]

NARRATIVE: CASE EVENT DATE: 20170701
